FAERS Safety Report 7384391-8 (Version None)
Quarter: 2011Q1

REPORT INFORMATION
  Report Type: 
  Country: None (occurrence: None)
  Receive Date: 20110330
  Receipt Date: 20101006
  Transmission Date: 20110831
  Serious: Yes (Hospitalization)
  Sender: FDA-Public Use
  Company Number: US-BAYER-201036621NA

PATIENT
  Sex: Female
  Weight: 69.841 kg

DRUGS (7)
  1. DOXYCYCLIN [DOXYCYCLINE] [Concomitant]
  2. LAMICTAL [Concomitant]
     Indication: BIPOLAR DISORDER
     Dosage: UNK
  3. LOESTRIN 1.5/30 [Concomitant]
  4. YAZ [Suspect]
     Indication: ACNE
  5. FLAGYL [Concomitant]
  6. ZOLOFT [Concomitant]
     Indication: DEPRESSION
     Dosage: 50 MG, UNK
  7. TRAZODONE [Concomitant]
     Dosage: 25 MG, UNK

REACTIONS (3)
  - PULMONARY THROMBOSIS [None]
  - MENTAL DISORDER [None]
  - INJURY [None]
